FAERS Safety Report 5914947-8 (Version None)
Quarter: 2008Q4

REPORT INFORMATION
  Report Type: 
  Country: None (occurrence: None)
  Receive Date: 20081010
  Receipt Date: 20080930
  Transmission Date: 20090506
  Serious: Yes (Hospitalization)
  Sender: FDA-Public Use
  Company Number: US-AVENTIS-200718324US

PATIENT
  Sex: Female

DRUGS (14)
  1. KETEK [Suspect]
     Indication: PNEUMONIA
     Route: 048
     Dates: start: 20061130, end: 20061209
  2. KETEK [Suspect]
     Dosage: DOSE: UNK
     Dates: start: 20061201, end: 20061201
  3. KETEK [Suspect]
     Route: 048
     Dates: start: 20070302, end: 20070301
  4. CYMBALTA [Suspect]
     Dosage: DOSE: UNK
     Route: 048
     Dates: end: 20070301
  5. EFFEXOR XR [Suspect]
     Route: 048
  6. NEURONTIN [Suspect]
     Dosage: DOSE: UNK
  7. TRAMADOL HCL [Suspect]
     Dosage: DOSE: UNK
  8. PREMARIN [Suspect]
     Dosage: DOSE: UNK
  9. ANTIBIOTICS [Suspect]
     Dosage: DOSE: UNK
  10. NEURONTIN [Concomitant]
     Dosage: DOSE: UNK
  11. TRAMADOL HCL [Concomitant]
     Dosage: DOSE: UNK
  12. PREMARIN [Concomitant]
     Dosage: DOSE: UNK
  13. NAPROXEN SODIUM [Concomitant]
     Dosage: DOSE: UNK
  14. GUIADRINE [Concomitant]
     Dosage: DOSE: UNK

REACTIONS (30)
  - ABDOMINAL DISCOMFORT [None]
  - BLOOD BILIRUBIN INCREASED [None]
  - BLOOD CREATININE INCREASED [None]
  - BLOOD UREA INCREASED [None]
  - BRAIN NATRIURETIC PEPTIDE INCREASED [None]
  - CARDIAC FAILURE CONGESTIVE [None]
  - COAGULOPATHY [None]
  - CONFUSIONAL STATE [None]
  - CONGESTIVE CARDIOMYOPATHY [None]
  - COUGH [None]
  - DYSPNOEA [None]
  - EJECTION FRACTION DECREASED [None]
  - HEPATIC ENZYME INCREASED [None]
  - HEPATITIS [None]
  - IRON DEFICIENCY ANAEMIA [None]
  - LEFT VENTRICULAR DYSFUNCTION [None]
  - MENTAL STATUS CHANGES [None]
  - METABOLIC ACIDOSIS [None]
  - MITRAL VALVE INCOMPETENCE [None]
  - NAUSEA [None]
  - PORTAL VEIN THROMBOSIS [None]
  - RENAL FAILURE ACUTE [None]
  - RESPIRATORY FAILURE [None]
  - RETCHING [None]
  - THROMBOCYTOPENIA [None]
  - THROMBOTIC THROMBOCYTOPENIC PURPURA [None]
  - TROPONIN INCREASED [None]
  - URINARY TRACT INFECTION ENTEROCOCCAL [None]
  - URINE OUTPUT DECREASED [None]
  - VOMITING [None]
